FAERS Safety Report 9007350 (Version 4)
Quarter: 2014Q1

REPORT INFORMATION
  Report Type: Spontaneous
  Country: US (occurrence: US)
  Receive Date: 20130110
  Receipt Date: 20140310
  Transmission Date: 20141002
  Serious: Yes (Death, Hospitalization, Disabling, Other)
  Sender: FDA-Public Use
  Company Number: US-009507513-1301USA000950

PATIENT
  Sex: Female
  Weight: 36.28 kg

DRUGS (4)
  1. FOSAMAX [Suspect]
     Indication: OSTEOPOROSIS POSTMENOPAUSAL
     Dosage: 10 MG, UNK
     Route: 048
     Dates: start: 199702, end: 200607
  2. FOSAMAX [Suspect]
     Dosage: 70 MG, UNK
     Route: 048
     Dates: end: 200607
  3. LEVOTHYROXINE SODIUM [Concomitant]
     Indication: HYPOTHYROIDISM
     Dosage: UNK
     Dates: start: 20010116, end: 201110
  4. SYNTHROID [Concomitant]
     Indication: HYPOTHYROIDISM
     Dosage: UNK
     Dates: start: 20030816

REACTIONS (28)
  - Femur fracture [Unknown]
  - Intramedullary rod insertion [Unknown]
  - Death [Fatal]
  - Femur fracture [Unknown]
  - Osteoporosis [Unknown]
  - Stress fracture [Unknown]
  - Low turnover osteopathy [Unknown]
  - Cholecystectomy [Unknown]
  - Gastric ulcer surgery [Unknown]
  - Bronchitis [Unknown]
  - Hypertension [Unknown]
  - Blood cholesterol increased [Unknown]
  - Cardiovascular disorder [Unknown]
  - Cardiac failure [Unknown]
  - Appendicectomy [Unknown]
  - Hysterectomy [Unknown]
  - Spinal fracture [Unknown]
  - Road traffic accident [Unknown]
  - Cataract operation [Unknown]
  - Eye laser surgery [Unknown]
  - Macular degeneration [Unknown]
  - Asthma [Not Recovered/Not Resolved]
  - Tooth loss [Unknown]
  - Ventricular extrasystoles [Unknown]
  - Osteopenia [Unknown]
  - Injection site granuloma [Unknown]
  - Spinal osteoarthritis [Unknown]
  - Gastric ulcer [Unknown]
